FAERS Safety Report 9298161 (Version 1)
Quarter: 2012Q4

REPORT INFORMATION
  Report Type: Spontaneous
  Country: JP (occurrence: None)
  Receive Date: 20121031
  Receipt Date: 20121031
  Transmission Date: 20130627
  Serious: Yes (Death, Life-Threatening)
  Sender: FDA-Public Use
  Company Number: ENT 2012-0125

PATIENT
  Age: 64 Year
  Sex: Female

DRUGS (5)
  1. COMTAN [Suspect]
     Indication: PARKINSON^S DISEASE
     Dosage: 400mg daily (1 tablet 4 times daily): Strength 100 mg
     Route: 048
     Dates: end: 20120727
  2. MENESIT [Suspect]
     Indication: PARKINSON^S DISEASE
     Dosage: 600mg daily (1 tablet 6 times daily): Strength 100 mg
     Route: 048
     Dates: end: 20120730
  3. TRERIEF [Suspect]
     Indication: PARKINSON^S DISEASE
     Dosage: 100 mg daily (1 tablet 4 times daily), Strength: 25 mg
     Route: 048
     Dates: end: 20120730
  4. BI SIFROL [Suspect]
     Indication: PARKINSON^S DISEASE
     Dosage: 3 mg daily (2 tablets 3 times daily), Strength: 0.5 mg
     Route: 048
     Dates: end: 20120730
  5. MAGMITT KENEI [Concomitant]

REACTIONS (6)
  - Drug-induced liver injury [None]
  - Hepatitis fulminant [None]
  - Disseminated intravascular coagulation [None]
  - Neuroleptic malignant syndrome [None]
  - General physical health deterioration [None]
  - Depressed level of consciousness [None]
